FAERS Safety Report 9380795 (Version 1)
Quarter: 2013Q3

REPORT INFORMATION
  Report Type: Spontaneous
  Country: BR (occurrence: BR)
  Receive Date: 20130702
  Receipt Date: 20130702
  Transmission Date: 20140515
  Serious: Yes (Other)
  Sender: FDA-Public Use
  Company Number: BR-ELI_LILLY_AND_COMPANY-BR201306006803

PATIENT
  Sex: Female

DRUGS (6)
  1. HUMULIN NPH [Suspect]
     Indication: TYPE 2 DIABETES MELLITUS
     Dosage: 2 IU, EACH MORNING
     Route: 058
     Dates: start: 201303
  2. HUMULIN NPH [Suspect]
     Dosage: 4 IU, QD
     Route: 058
     Dates: start: 201303
  3. HUMULIN NPH [Suspect]
     Dosage: 7 IU, QD
     Route: 058
     Dates: start: 201303
  4. DECADRON                           /00016001/ [Concomitant]
     Dosage: UNK, UNKNOWN
     Route: 065
  5. GLIFAGE [Concomitant]
     Dosage: 500 MG, TID
     Route: 065
  6. GLIMEPIRIDA [Concomitant]
     Dosage: 4 MG, QD
     Route: 065

REACTIONS (4)
  - Plasma cell myeloma [Not Recovered/Not Resolved]
  - Blood glucose abnormal [Not Recovered/Not Resolved]
  - Emotional disorder [Unknown]
  - Stress [Unknown]
